FAERS Safety Report 15883318 (Version 1)
Quarter: 2019Q1

REPORT INFORMATION
  Report Type: Spontaneous
  Country: DE (occurrence: DE)
  Receive Date: 20190129
  Receipt Date: 20190129
  Transmission Date: 20190417
  Serious: Yes (Hospitalization)
  Sender: FDA-Public Use
  Company Number: DE-ACCORD-103718

PATIENT
  Age: 74 Year
  Sex: Male

DRUGS (8)
  1. FUROSEMIDE/SPIRONOLACTONE [Concomitant]
     Dosage: 50, 20 MG, 1-1-0-0
  2. BISOPROLOL [Concomitant]
     Active Substance: BISOPROLOL
     Dosage: 2.5 MG, 0.5-0-0-0.5
  3. QUETIAPINE. [Suspect]
     Active Substance: QUETIAPINE
     Indication: PRODUCT USED FOR UNKNOWN INDICATION
     Dosage: 50 MG, 1-0.5-1-0.5
  4. SIMVASTATIN. [Concomitant]
     Active Substance: SIMVASTATIN
     Dosage: 40 MG, 0-0-0.5-0
  5. LACTULOSE. [Concomitant]
     Active Substance: LACTULOSE
     Dosage: 20 MG, 1-0-0-0
  6. FOLIC ACID. [Concomitant]
     Active Substance: FOLIC ACID
     Dosage: 5 MG, 1-0-0-0
  7. PHENPROCOUMON [Concomitant]
     Active Substance: PHENPROCOUMON
     Dosage: 3 MG, 0-0-0.5-0
  8. PIPAMPERONE/PIPAMPERONE HYDROCHLORIDE [Suspect]
     Active Substance: PIPAMPERONE HYDROCHLORIDE
     Indication: PRODUCT USED FOR UNKNOWN INDICATION
     Dosage: 40 MG, 0-0.5-0.5-0

REACTIONS (2)
  - Seizure [Unknown]
  - Product prescribing error [Unknown]

NARRATIVE: CASE EVENT DATE: 20151004
